FAERS Safety Report 8377371-7 (Version None)
Quarter: 2012Q2

REPORT INFORMATION
  Report Type: 
  Country: None (occurrence: None)
  Receive Date: 20120522
  Receipt Date: 20120510
  Transmission Date: 20120825
  Serious: Yes (Death, Hospitalization)
  Sender: FDA-Public Use
  Company Number: PT-JNJFOC-20120308361

PATIENT
  Age: 65 Year
  Sex: Male

DRUGS (6)
  1. LEUPROLIDE ACETATE [Concomitant]
     Indication: PROSTATE CANCER
     Dates: start: 20120412
  2. PREDNISOLONE [Concomitant]
     Indication: PROSTATE CANCER
     Route: 065
  3. ZYTIGA [Suspect]
     Indication: PROSTATE CANCER
     Route: 048
     Dates: start: 20120209
  4. ZYTIGA [Suspect]
     Route: 048
  5. ZOLADEX [Concomitant]
     Indication: PROSTATE CANCER
     Dates: start: 20120209
  6. ZOMETA [Concomitant]
     Indication: PROSTATE CANCER
     Dates: start: 20120209

REACTIONS (5)
  - LOCALISED OEDEMA [None]
  - PAIN [None]
  - DISEASE PROGRESSION [None]
  - OEDEMA [None]
  - HAEMOGLOBIN DECREASED [None]
